FAERS Safety Report 5860727-1 (Version None)
Quarter: 2008Q3

REPORT INFORMATION
  Report Type: 
  Country: None (occurrence: None)
  Receive Date: 20080827
  Receipt Date: 20071203
  Transmission Date: 20090109
  Serious: No
  Sender: FDA-Public Use
  Company Number: US-ABBOTT-07P-163-0426880-00

PATIENT
  Sex: Female
  Weight: 77.18 kg

DRUGS (9)
  1. COATED PDS [Suspect]
     Indication: BLOOD TRIGLYCERIDES INCREASED
     Route: 048
     Dates: start: 20071108, end: 20071126
  2. GABAPENTIN [Concomitant]
     Indication: NEUROPATHY PERIPHERAL
     Route: 048
  3. CLOPIDOGREL [Concomitant]
     Indication: HEART RATE IRREGULAR
     Route: 048
  4. TRIAMETERENE [Concomitant]
     Indication: HYPERTENSION
     Route: 048
  5. IRBESARTAN [Concomitant]
     Indication: HYPERTENSION
     Route: 048
  6. OMEPRAZOLE [Concomitant]
     Indication: GASTROOESOPHAGEAL REFLUX DISEASE
     Route: 048
  7. FLECAINIDE ACETATE [Concomitant]
     Indication: HEART RATE IRREGULAR
     Route: 048
  8. METOPROLOL SUCCINATE [Concomitant]
     Indication: HEART RATE IRREGULAR
     Route: 048
  9. ACETYLSALICYLIC ACID SRT [Concomitant]
     Indication: CARDIOVASCULAR EVENT PROPHYLAXIS
     Route: 048

REACTIONS (4)
  - BURNING SENSATION [None]
  - FLUSHING [None]
  - PARAESTHESIA [None]
  - URTICARIA [None]
